FAERS Safety Report 6275828-6 (Version None)
Quarter: 2009Q3

REPORT INFORMATION
  Report Type: 
  Country: None (occurrence: None)
  Receive Date: 20090721
  Receipt Date: 20090714
  Transmission Date: 20100115
  Serious: Yes (Hospitalization)
  Sender: FDA-Public Use
  Company Number: PHHY2008AT11073

PATIENT
  Sex: Male
  Weight: 81 kg

DRUGS (7)
  1. CERTICAN [Suspect]
     Indication: RENAL TRANSPLANT
     Dosage: 1.5 MG PER DAY
     Route: 048
     Dates: start: 20080526, end: 20080605
  2. CERTICAN [Suspect]
     Dosage: 1.0 MG PER DAY
     Route: 048
     Dates: start: 20080605, end: 20080616
  3. SANDIMMUNE [Concomitant]
     Indication: RENAL TRANSPLANT
     Dosage: 50 MG, UNK
     Route: 048
     Dates: start: 20080526
  4. SANDIMMUNE [Concomitant]
     Dosage: 2 X 50 MG DAILY
     Route: 048
     Dates: start: 20080616
  5. PREDNISOLONE [Concomitant]
     Indication: RENAL TRANSPLANT
     Dosage: 5 MG, UNK
     Route: 048
  6. PREDNISOLONE [Concomitant]
     Dosage: 5 MG EVERY SECOND DAY
     Dates: start: 20080602, end: 20080610
  7. PREDNISOLONE [Concomitant]
     Dosage: 15 MG DAILY
     Dates: start: 20080617

REACTIONS (6)
  - ARTHRALGIA [None]
  - BARRETT'S OESOPHAGUS [None]
  - BURSITIS [None]
  - CHEST PAIN [None]
  - HAEMATEMESIS [None]
  - REFLUX OESOPHAGITIS [None]
